FAERS Safety Report 12421410 (Version 1)
Quarter: 2016Q2

REPORT INFORMATION
  Report Type: Spontaneous
  Country: BR (occurrence: BR)
  Receive Date: 20160531
  Receipt Date: 20160531
  Transmission Date: 20160815
  Serious: Yes (Hospitalization, Other)
  Sender: FDA-Public Use
  Company Number: BR-JNJFOC-20150610531

PATIENT
  Sex: Female
  Weight: 50 kg

DRUGS (18)
  1. REMICADE [Suspect]
     Active Substance: INFLIXIMAB
     Indication: VASCULITIS
     Route: 042
     Dates: start: 20150526
  2. REMICADE [Suspect]
     Active Substance: INFLIXIMAB
     Indication: TAKAYASU^S ARTERITIS
     Route: 042
     Dates: start: 20150610
  3. ENALAPRIL [Concomitant]
     Active Substance: ENALAPRIL
     Route: 065
  4. MAREVAN [Suspect]
     Active Substance: WARFARIN SODIUM
     Indication: PRODUCT USED FOR UNKNOWN INDICATION
     Route: 065
  5. REMICADE [Suspect]
     Active Substance: INFLIXIMAB
     Indication: VASCULITIS
     Route: 042
     Dates: start: 2012
  6. METHOTREXATE [Concomitant]
     Active Substance: METHOTREXATE
     Indication: TAKAYASU^S ARTERITIS
     Route: 065
  7. ATENOLOL. [Concomitant]
     Active Substance: ATENOLOL
     Route: 065
  8. REMICADE [Suspect]
     Active Substance: INFLIXIMAB
     Indication: RHEUMATOID ARTHRITIS
     Route: 042
     Dates: start: 20150526
  9. REMICADE [Suspect]
     Active Substance: INFLIXIMAB
     Indication: CARDIOVASCULAR DISORDER
     Route: 042
     Dates: start: 2012
  10. REMICADE [Suspect]
     Active Substance: INFLIXIMAB
     Indication: CARDIOVASCULAR DISORDER
     Route: 042
     Dates: start: 20150610
  11. REMICADE [Suspect]
     Active Substance: INFLIXIMAB
     Indication: VASCULITIS
     Route: 042
     Dates: start: 20150610
  12. REMICADE [Suspect]
     Active Substance: INFLIXIMAB
     Indication: RHEUMATOID ARTHRITIS
     Route: 042
     Dates: start: 2012
  13. REMICADE [Suspect]
     Active Substance: INFLIXIMAB
     Indication: RHEUMATOID ARTHRITIS
     Route: 042
     Dates: start: 20150610
  14. METHOTREXATE [Concomitant]
     Active Substance: METHOTREXATE
     Indication: VASCULITIS
     Route: 065
  15. REMICADE [Suspect]
     Active Substance: INFLIXIMAB
     Indication: TAKAYASU^S ARTERITIS
     Route: 042
     Dates: start: 2012
  16. FERROUS SULFATE. [Concomitant]
     Active Substance: FERROUS SULFATE
     Route: 065
  17. REMICADE [Suspect]
     Active Substance: INFLIXIMAB
     Indication: CARDIOVASCULAR DISORDER
     Route: 042
     Dates: start: 20150526
  18. REMICADE [Suspect]
     Active Substance: INFLIXIMAB
     Indication: TAKAYASU^S ARTERITIS
     Route: 042
     Dates: start: 20150526

REACTIONS (9)
  - Blood urine present [Unknown]
  - Off label use [Not Recovered/Not Resolved]
  - Menorrhagia [Unknown]
  - Mouth haemorrhage [Unknown]
  - Weight fluctuation [Unknown]
  - Cardiac murmur [Unknown]
  - Arterial occlusive disease [Unknown]
  - Chest pain [Unknown]
  - Product use issue [Unknown]

NARRATIVE: CASE EVENT DATE: 2012
